FAERS Safety Report 4860697-9 (Version None)
Quarter: 2005Q4

REPORT INFORMATION
  Report Type: 
  Country: None (occurrence: None)
  Receive Date: 20051216
  Receipt Date: 20051209
  Transmission Date: 20060501
  Serious: No
  Sender: FDA-Public Use
  Company Number: US200511000092

PATIENT
  Age: 77 Year
  Sex: Female

DRUGS (3)
  1. EVISTA [Suspect]
  2. FORTEO [Suspect]
     Indication: PROPHYLAXIS
     Dates: start: 20051029
  3. COUMADIN [Concomitant]

REACTIONS (3)
  - BONE DENSITY DECREASED [None]
  - INJECTION SITE BRUISING [None]
  - PHARMACEUTICAL PRODUCT COMPLAINT [None]
